FAERS Safety Report 4897248-9 (Version None)
Quarter: 2005Q4

REPORT INFORMATION
  Report Type: 
  Country: None (occurrence: None)
  Receive Date: 20051223
  Receipt Date: 20050922
  Transmission Date: 20060501
  Serious: No
  Sender: FDA-Public Use
  Company Number: 05P-163-0311684-00

PATIENT
  Age: 53 Year
  Sex: Female
  Weight: 80.7403 kg

DRUGS (11)
  1. HUMIRA [Suspect]
     Indication: RHEUMATOID ARTHRITIS
     Dosage: 40 MG , SUBCUTANEOUS
     Route: 058
     Dates: start: 20040101
  2. HYDROXYCLOROQUINE PHOSPHATE [Concomitant]
  3. METHOTREXATE [Concomitant]
  4. FOLIC ACID [Concomitant]
  5. CELECOXIB [Concomitant]
  6. METFORMIN HYDROCHLORIDE [Concomitant]
  7. ATORVASTATIN CALCIUM [Concomitant]
  8. IRBESARTAN [Concomitant]
  9. MULTIVITAMIN [Concomitant]
  10. CALCIUM GLUCONATE [Concomitant]
  11. MAGNESIUM [Concomitant]

REACTIONS (2)
  - INJECTION SITE IRRITATION [None]
  - INJECTION SITE PAIN [None]
